FAERS Safety Report 14632483 (Version 1)
Quarter: 2018Q1

REPORT INFORMATION
  Report Type: Spontaneous
  Country: US (occurrence: US)
  Receive Date: 20180313
  Receipt Date: 20180313
  Transmission Date: 20180509
  Serious: No
  Sender: FDA-Public Use
  Company Number: US-PFIZER INC-2018100136

PATIENT
  Sex: Female
  Weight: 56.7 kg

DRUGS (1)
  1. XANAX [Suspect]
     Active Substance: ALPRAZOLAM
     Dosage: 0.5 MG, (ONCE)

REACTIONS (3)
  - Drug dispensing error [Unknown]
  - Headache [Recovered/Resolved]
  - Nausea [Recovered/Resolved]
